FAERS Safety Report 9199212 (Version 1)
Quarter: 2013Q1

REPORT INFORMATION
  Report Type: Spontaneous
  Country: US (occurrence: US)
  Receive Date: 20130329
  Receipt Date: 20130329
  Transmission Date: 20140127
  Serious: No
  Sender: FDA-Public Use
  Company Number: US-009507513-1303USA013661

PATIENT
  Age: 48 Year
  Sex: Female

DRUGS (3)
  1. SAPHRIS [Suspect]
     Indication: BIPOLAR I DISORDER
     Dosage: 5 MG, HS
     Route: 060
     Dates: start: 201301, end: 2013
  2. SAPHRIS [Suspect]
     Dosage: 10 MG, HS
     Route: 060
     Dates: start: 2013, end: 2013
  3. SAPHRIS [Suspect]
     Dosage: 5MG IN THE MORNING 10MG AT BEDTIME
     Route: 060
     Dates: start: 2013, end: 2013

REACTIONS (3)
  - Poor quality sleep [Unknown]
  - Drooling [Unknown]
  - Somnolence [Unknown]
